FAERS Safety Report 25221072 (Version 4)
Quarter: 2025Q3

REPORT INFORMATION
  Report Type: Spontaneous
  Country: EU (occurrence: EU)
  Receive Date: 20250421
  Receipt Date: 20250714
  Transmission Date: 20251021
  Serious: Yes (Other)
  Sender: ALKEM
  Company Number: None

PATIENT
  Age: 70 Year
  Sex: Female

DRUGS (1)
  1. PREGABALIN [Suspect]
     Active Substance: PREGABALIN
     Indication: Multiple sclerosis
     Dosage: 325 MILLIGRAM, QD (EVERY 1 DAY)
     Route: 065

REACTIONS (5)
  - Haematoma [Recovered/Resolved]
  - Epistaxis [Recovered/Resolved]
  - Platelet disorder [Recovered/Resolved]
  - Haemorrhage [Recovered/Resolved]
  - Off label use [Unknown]
